FAERS Safety Report 19061125 (Version 2)
Quarter: 2021Q2

REPORT INFORMATION
  Report Type: Spontaneous
  Country: GB (occurrence: GB)
  Receive Date: 20210326
  Receipt Date: 20210402
  Transmission Date: 20210717
  Serious: Yes (Hospitalization, Other)
  Sender: FDA-Public Use
  Company Number: GB-ADVANZ PHARMA-202103002174

PATIENT

DRUGS (5)
  1. HYDROXYCHLOROQUINE [Concomitant]
     Active Substance: HYDROXYCHLOROQUINE
     Dosage: 200 MG, QD
  2. AZATHIOPRINE. [Suspect]
     Active Substance: AZATHIOPRINE
     Dosage: 50 MG, QOD
  3. LAMIVUDINE. [Concomitant]
     Active Substance: LAMIVUDINE
     Dosage: 50 MG, QD
  4. DOLUTEGRAVIR [Concomitant]
     Active Substance: DOLUTEGRAVIR
     Dosage: 300 MG, QD
  5. PREDNISOLONE. [Suspect]
     Active Substance: PREDNISOLONE
     Dosage: 5 MG, QD

REACTIONS (3)
  - Bacteraemia [Recovered/Resolved]
  - Breast abscess [Recovered/Resolved]
  - Salmonellosis [Recovered/Resolved]

NARRATIVE: CASE EVENT DATE: 2020
